FAERS Safety Report 15772707 (Version 1)
Quarter: 2018Q4

REPORT INFORMATION
  Report Type: Spontaneous
  Country: US (occurrence: US)
  Receive Date: 20181228
  Receipt Date: 20181228
  Transmission Date: 20190205
  Serious: No
  Sender: FDA-Public Use
  Company Number: US-SUNOVION-2018SUN005020

PATIENT
  Sex: Female

DRUGS (21)
  1. CYANOCOBALAMIN ABBOTT [Concomitant]
     Dosage: 1 TABLET (2000MCG) BY MOUTH DAILY
     Route: 048
  2. ALBUTEROL SULFATE. [Concomitant]
     Active Substance: ALBUTEROL SULFATE
     Dosage: 3 ML BY NEBULIZATION EVERY 4 HOURS AS NEEDED
     Route: 055
  3. CETIRIZINE [Concomitant]
     Active Substance: CETIRIZINE HYDROCHLORIDE
     Dosage: 10 MG, QD
     Route: 048
  4. ALBUTEROL HFA [Concomitant]
     Active Substance: ALBUTEROL SULFATE
     Dosage: 90 MCG/PUFF INHALE 2 PUFFS INTO TH ELUNGS EVERY 4 HOURS AS NEEDED
     Route: 055
  5. ROSUVASTATIN ACTAVIS [Concomitant]
     Active Substance: ROSUVASTATIN
     Dosage: 10 MG, QD
     Route: 048
  6. GABAPENTIN BETA [Concomitant]
     Dosage: 100 MG, TID
     Route: 048
  7. POLYETHYLENE GLYCOL 3350. [Concomitant]
     Active Substance: POLYETHYLENE GLYCOL 3350
     Indication: CONSTIPATION
     Dosage: 17 G DAILY AS NEEDED
     Route: 048
  8. ACETAMINOPHEN. [Concomitant]
     Active Substance: ACETAMINOPHEN
     Dosage: 325 MG, TWO TABLETS BY MOUTH EVERY 4 HOURS AS NEEDED
     Route: 048
  9. ALPRAZOLAM 1 A PHARMA [Concomitant]
     Dosage: 0.5 MG TABLETS BY MOUTH 2 TIMES DAILY AS NEEDED)
     Route: 048
  10. BENZOCAINE. [Concomitant]
     Active Substance: BENZOCAINE
     Dosage: 1 LOZENGE INSIDE CHEEK AS NEEDED
     Route: 048
  11. ASPIRIN ACTAVIS [Concomitant]
     Dosage: 81 MG, QD
     Route: 048
  12. FLUTICASONE PROPIONATE (GLUCOCORTICOID) [Concomitant]
     Active Substance: FLUTICASONE PROPIONATE
     Dosage: 1 SPRAY IN EACH NARE DAILY
     Route: 045
  13. DOCUSATE SODIUM + SENNA [Concomitant]
     Active Substance: DOCUSATE SODIUM\SENNOSIDE A\SENNOSIDE B
     Dosage: 100 MG, BID
     Route: 048
  14. CALCIUM CARBONATE TEVA [Concomitant]
     Indication: DYSPEPSIA
     Dosage: 500 MG AS NEEDED
     Route: 048
  15. SALINE NASAL MIST [Concomitant]
     Dosage: 1 SPRAY INTO EACH NARE AS NEEDED
     Route: 045
  16. ABTEI CALCIUM+D3 OSTEO VITAL [Concomitant]
     Dosage: 1 TABLET BY MOUTH DAILY
     Route: 048
  17. LONHALA MAGNAIR [Suspect]
     Active Substance: GLYCOPYRROLATE
     Dosage: 25 MCG/ML SOLUTION, INHALE 25 MCG INTO THE LUNGS TWO TIMES DAILY
     Route: 055
  18. OXYGEN. [Concomitant]
     Active Substance: OXYGEN
     Dosage: 2 L PRN
     Route: 065
  19. CHOLECALCIFEROL ARROW [Concomitant]
     Dosage: 2000 UNITS BY MOUTH DAILY
     Route: 048
  20. VITAMIN B COMPLEX NOS [Concomitant]
     Active Substance: CYANOCOBALAMIN\PYRIDOXINE HYDROCHLORIDE\RIBOFLAVIN\SODIUM PANTOTHENATE\THIAMINE HYDROCHLORIDE\VITAMIN B COMPLEX
     Dosage: 1 TABLET BY MOUTH DAILY
     Route: 048
  21. TORSEMIDE. [Concomitant]
     Active Substance: TORSEMIDE
     Dosage: 1 TABLET BY MOUTH DAILY
     Route: 048

REACTIONS (2)
  - Fatigue [Unknown]
  - Dyspnoea [Unknown]
